FAERS Safety Report 4552970-9 (Version None)
Quarter: 2005Q1

REPORT INFORMATION
  Report Type: 
  Country: None (occurrence: None)
  Receive Date: 20050111
  Receipt Date: 20050111
  Transmission Date: 20050727
  Serious: Yes (Life-Threatening)
  Sender: FDA-Public Use
  Company Number: None

PATIENT
  Age: 6 Year
  Sex: Male
  Weight: 10.5 kg

DRUGS (6)
  1. BUPIVACAINE [Suspect]
     Indication: POSTOPERATIVE ANALGESIA
     Dosage: 0.38 MG/KG/HR VIA EPIDURAL
     Route: 008
     Dates: start: 20040817, end: 20040819
  2. CEFAZOLIN [Concomitant]
  3. BACLOFEN [Concomitant]
  4. TYLENOL [Concomitant]
  5. TORADOL [Concomitant]
  6. D5 ISOLYTE M [Concomitant]

REACTIONS (3)
  - OXYGEN SATURATION DECREASED [None]
  - RESPIRATORY RATE INCREASED [None]
  - SUPRAVENTRICULAR TACHYCARDIA [None]
